FAERS Safety Report 6378773-0 (Version None)
Quarter: 2009Q3

REPORT INFORMATION
  Report Type: 
  Country: None (occurrence: None)
  Receive Date: 20090928
  Receipt Date: 20090918
  Transmission Date: 20100115
  Serious: Yes (Other)
  Sender: FDA-Public Use
  Company Number: JP-ABBOTT-09P-087-0597863-00

PATIENT
  Age: 90 Year
  Sex: Female

DRUGS (11)
  1. CEFDINIR [Suspect]
     Indication: DRUG USE FOR UNKNOWN INDICATION
     Route: 048
  2. SEROQUEL [Suspect]
     Indication: DRUG USE FOR UNKNOWN INDICATION
     Route: 048
  3. ASPIRIN [Concomitant]
     Indication: DRUG USE FOR UNKNOWN INDICATION
  4. TANATRIL [Concomitant]
     Indication: DRUG USE FOR UNKNOWN INDICATION
  5. BUP-4 [Concomitant]
     Indication: DRUG USE FOR UNKNOWN INDICATION
  6. ITOROL [Concomitant]
     Indication: DRUG USE FOR UNKNOWN INDICATION
  7. SELBEX [Concomitant]
     Indication: DRUG USE FOR UNKNOWN INDICATION
  8. OMEPRAL [Concomitant]
     Indication: DRUG USE FOR UNKNOWN INDICATION
  9. LOXONIN [Concomitant]
     Indication: DRUG USE FOR UNKNOWN INDICATION
  10. MUCOSTA [Concomitant]
     Indication: DRUG USE FOR UNKNOWN INDICATION
  11. DASEN [Concomitant]
     Indication: DRUG USE FOR UNKNOWN INDICATION

REACTIONS (1)
  - RESPIRATORY ARREST [None]
